FAERS Safety Report 13137833 (Version 1)
Quarter: 2017Q1

REPORT INFORMATION
  Report Type: Spontaneous
  Country: US (occurrence: US)
  Receive Date: 20170123
  Receipt Date: 20170123
  Transmission Date: 20170428
  Serious: No
  Sender: FDA-Public Use
  Company Number: US-UNITED THERAPEUTICS-UNT-2016-012152

PATIENT
  Age: 70 Year
  Sex: Male
  Weight: 73.47 kg

DRUGS (5)
  1. OPSUMIT [Concomitant]
     Active Substance: MACITENTAN
     Indication: PRODUCT USED FOR UNKNOWN INDICATION
  2. ORENITRAM [Suspect]
     Active Substance: TREPROSTINIL
     Indication: PULMONARY ARTERIAL HYPERTENSION
     Dosage: 1.25 MG, BID
     Route: 048
     Dates: start: 20150515
  3. ORENITRAM [Suspect]
     Active Substance: TREPROSTINIL
     Dosage: 0.25MG, BID
     Route: 048
  4. ORENITRAM [Suspect]
     Active Substance: TREPROSTINIL
     Dosage: UNK
     Route: 048
  5. ORENITRAM [Suspect]
     Active Substance: TREPROSTINIL
     Dosage: 1MG BID
     Route: 048

REACTIONS (4)
  - Cough [Unknown]
  - Weight decreased [Unknown]
  - Oesophageal motility disorder [Unknown]
  - Dysphagia [Unknown]

NARRATIVE: CASE EVENT DATE: 20150515
